FAERS Safety Report 25463960 (Version 1)
Quarter: 2025Q2

REPORT INFORMATION
  Report Type: Spontaneous
  Country: US (occurrence: US)
  Receive Date: 20250621
  Receipt Date: 20250621
  Transmission Date: 20250717
  Serious: No
  Sender: AUROBINDO
  Company Number: US-AUROBINDO-AUR-APL-2025-020040

PATIENT
  Age: 11 Year
  Sex: Male
  Weight: 70 kg

DRUGS (5)
  1. ZANTAC 360 [Suspect]
     Active Substance: FAMOTIDINE
     Indication: Premedication
     Route: 026
  2. DIPHENHYDRAMINE [Concomitant]
     Active Substance: DIPHENHYDRAMINE
     Indication: Premedication
  3. DIPHENHYDRAMINE [Concomitant]
     Active Substance: DIPHENHYDRAMINE
     Route: 026
  4. ONDANSETRON [Concomitant]
     Active Substance: ONDANSETRON
     Indication: Premedication
  5. ONDANSETRON [Concomitant]
     Active Substance: ONDANSETRON
     Route: 026

REACTIONS (1)
  - Off label use [Unknown]
